FAERS Safety Report 4423238-6 (Version None)
Quarter: 2004Q3

REPORT INFORMATION
  Report Type: 
  Country: None (occurrence: None)
  Receive Date: 20040811
  Receipt Date: 20040805
  Transmission Date: 20050211
  Serious: Yes (Death, Hospitalization, Other)
  Sender: FDA-Public Use
  Company Number: PHBS2004AU10461

PATIENT
  Age: 74 Year
  Sex: Female

DRUGS (10)
  1. DICLOFENAC [Suspect]
     Dosage: 100 MG, ONCE/SINGLE
     Route: 054
  2. DICLOFENAC [Suspect]
     Indication: ANALGESIC EFFECT
     Route: 061
  3. BENZYLPENICILLIN [Suspect]
     Dosage: 600 MG, QID
     Route: 042
  4. BENZYLPENICILLIN [Suspect]
     Dosage: 1.2 G, QID
  5. METRONIDAZOLE [Concomitant]
  6. GENTAMYCIN SULFATE [Concomitant]
  7. METFORMIN HCL [Concomitant]
  8. ATORVASTATIN CALCIUM [Concomitant]
  9. PERINDOPRIL [Concomitant]
  10. ASPIRIN [Concomitant]

REACTIONS (18)
  - ANAEMIA [None]
  - BLOOD BILIRUBIN INCREASED [None]
  - BLOOD LACTATE DEHYDROGENASE INCREASED [None]
  - CARDIO-RESPIRATORY DISTRESS [None]
  - COOMBS DIRECT TEST POSITIVE [None]
  - DISSEMINATED INTRAVASCULAR COAGULATION [None]
  - DRUG SPECIFIC ANTIBODY PRESENT [None]
  - HAEMOLYSIS [None]
  - HAPTOGLOBIN DECREASED [None]
  - HYPOXIA [None]
  - LUNG INFILTRATION [None]
  - MALAISE [None]
  - MULTI-ORGAN FAILURE [None]
  - MUSCLE HAEMORRHAGE [None]
  - PNEUMONIA [None]
  - POLYCHROMASIA [None]
  - RETICULOCYTOSIS [None]
  - SPHEROCYTIC ANAEMIA [None]
